FAERS Safety Report 20721021 (Version 1)
Quarter: 2022Q2

REPORT INFORMATION
  Report Type: Spontaneous
  Country: FR (occurrence: FR)
  Receive Date: 20220418
  Receipt Date: 20220418
  Transmission Date: 20220720
  Serious: Yes (Other)
  Sender: FDA-Public Use
  Company Number: None

PATIENT
  Age: 29 Year
  Sex: Female
  Weight: 69 kg

DRUGS (2)
  1. ABILIFY [Suspect]
     Active Substance: ARIPIPRAZOLE
     Indication: Psychotic disorder
     Dosage: 1 DF
     Route: 048
     Dates: start: 20211124, end: 20220206
  2. LOXAPINE SUCCINATE [Concomitant]
     Active Substance: LOXAPINE SUCCINATE
     Indication: Psychotic disorder
     Dosage: 1 DF
     Route: 048
     Dates: start: 20211005

REACTIONS (2)
  - Erythema [Recovered/Resolved]
  - Product use in unapproved indication [Unknown]

NARRATIVE: CASE EVENT DATE: 20211124
